FAERS Safety Report 7879302-2 (Version None)
Quarter: 2011Q4

REPORT INFORMATION
  Report Type: 
  Country: None (occurrence: None)
  Receive Date: 20111101
  Receipt Date: 20111027
  Transmission Date: 20120403
  Serious: Yes (Other)
  Sender: FDA-Public Use
  Company Number: US-PFIZER INC-2011263385

PATIENT
  Sex: Male
  Weight: 61.224 kg

DRUGS (3)
  1. BISMUTH SUBSALICYLATE [Concomitant]
     Indication: IRRITABLE BOWEL SYNDROME
     Dosage: UNK
  2. LOMOTIL [Concomitant]
     Indication: MUSCLE SPASMS
     Dosage: UNK
  3. VIAGRA [Suspect]
     Indication: ERECTILE DYSFUNCTION
     Dosage: UNK, AS NEEDED
     Route: 048
     Dates: start: 20090101

REACTIONS (1)
  - HIP ARTHROPLASTY [None]
